FAERS Safety Report 4694614-1 (Version None)
Quarter: 2005Q2

REPORT INFORMATION
  Report Type: 
  Country: None (occurrence: None)
  Receive Date: 20050617
  Receipt Date: 20050601
  Transmission Date: 20051028
  Serious: Yes (Death, Other)
  Sender: FDA-Public Use
  Company Number: 2005BI007553

PATIENT
  Sex: Female

DRUGS (7)
  1. AVONEX [Suspect]
     Indication: MULTIPLE SCLEROSIS
     Dosage: IM
     Route: 030
     Dates: start: 19990101, end: 20041030
  2. KEPPRA [Concomitant]
  3. AMANTADINE [Concomitant]
  4. DITROPAN [Concomitant]
  5. VISTORIL [Concomitant]
  6. ZOLOFT [Concomitant]
  7. MARINOL [Concomitant]

REACTIONS (9)
  - ABASIA [None]
  - CACHEXIA [None]
  - CARDIAC DISORDER [None]
  - CONVULSION [None]
  - DECUBITUS ULCER [None]
  - DYSSTASIA [None]
  - HEMIPLEGIA [None]
  - MULTIPLE SCLEROSIS [None]
  - PULMONARY EMBOLISM [None]
